FAERS Safety Report 14726691 (Version 8)
Quarter: 2018Q3

REPORT INFORMATION
  Report Type: Report from Study
  Country: JP (occurrence: JP)
  Receive Date: 20180406
  Receipt Date: 20180730
  Transmission Date: 20181010
  Serious: Yes (Other)
  Sender: FDA-Public Use
  Company Number: JP-BEH-2018089458

PATIENT
  Age: 83 Year
  Sex: Male
  Weight: 69.6 kg

DRUGS (14)
  1. CANDESARTAN. [Concomitant]
     Active Substance: CANDESARTAN
     Route: 048
  2. WARFARIN [Concomitant]
     Active Substance: WARFARIN
     Indication: PULMONARY EMBOLISM
     Dosage: 1.5 MG, UNK
     Route: 048
     Dates: start: 20180315
  3. ROZEREM [Concomitant]
     Active Substance: RAMELTEON
     Route: 048
  4. LASIX [Concomitant]
     Active Substance: FUROSEMIDE
     Route: 048
  5. SENNOSIDE                          /00571901/ [Concomitant]
     Active Substance: SENNOSIDES A AND B
     Route: 048
  6. ARTIST [Concomitant]
     Active Substance: CARVEDILOL
     Route: 048
  7. EPADEL                             /01682401/ [Concomitant]
     Active Substance: ICOSAPENT
     Route: 048
  8. ZETIA [Concomitant]
     Active Substance: EZETIMIBE
     Route: 048
  9. BERIPLEX P/N [Suspect]
     Active Substance: COAGULATION FACTOR IX HUMAN\COAGULATION FACTOR VII HUMAN\COAGULATION FACTOR X HUMAN\PROTEIN C\PROTEIN S HUMAN\PROTHROMBIN
     Indication: SURGERY
     Dosage: 1750 IU, UNK
     Route: 042
     Dates: start: 20180307
  10. AMITIZA [Concomitant]
     Active Substance: LUBIPROSTONE
     Route: 048
  11. KAYTWO [Suspect]
     Active Substance: MENATETRENONE
     Indication: PROCOAGULANT THERAPY
     Dosage: 20 MG, UNK
     Route: 065
     Dates: start: 20180305, end: 20180306
  12. FEBURIC [Concomitant]
     Active Substance: FEBUXOSTAT
     Route: 048
  13. WARFARIN [Concomitant]
     Active Substance: WARFARIN
     Dosage: 1.5 MG, UNK
     Route: 048
     Dates: end: 20180304
  14. PITAVASTATIN. [Concomitant]
     Active Substance: PITAVASTATIN CALCIUM
     Route: 048

REACTIONS (1)
  - Renal impairment [Not Recovered/Not Resolved]

NARRATIVE: CASE EVENT DATE: 20180308
